FAERS Safety Report 12417998 (Version 2)
Quarter: 2016Q2

REPORT INFORMATION
  Report Type: Spontaneous
  Country: RU (occurrence: RU)
  Receive Date: 20160531
  Receipt Date: 20160603
  Transmission Date: 20160815
  Serious: Yes (Life-Threatening, Hospitalization, Other)
  Sender: FDA-Public Use
  Company Number: RU-ASTRAZENECA-2016SE55478

PATIENT
  Age: 41 Year
  Sex: Male

DRUGS (10)
  1. ANTIBIOTICS [Concomitant]
     Active Substance: UNSPECIFIED INGREDIENT
  2. SYMPTHOMATIC AND SPASMOLYTIC DRUGS [Concomitant]
  3. NOLIPREL [Concomitant]
     Route: 048
  4. OMEZ [Concomitant]
     Active Substance: OMEPRAZOLE
  5. FORXIGA [Suspect]
     Active Substance: DAPAGLIFLOZIN
     Indication: TYPE 2 DIABETES MELLITUS
     Route: 048
     Dates: start: 201604, end: 201605
  6. CONCOR [Concomitant]
     Active Substance: BISOPROLOL FUMARATE
     Route: 048
  7. ANALGETICS [Concomitant]
  8. ANTIINFLAMMATORY DRUGS [Concomitant]
  9. ANTIULCERATIVE THERAPY [Concomitant]
  10. MAALOX ANTACID [Concomitant]
     Active Substance: ALUMINUM HYDROXIDE\DIMETHICONE\MAGNESIUM HYDROXIDE
     Dosage: 1 TABLE SPOON X 4 TIMES DAILY

REACTIONS (9)
  - Gastritis erosive [Recovered/Resolved]
  - Pancreatitis [Unknown]
  - Haematemesis [Unknown]
  - Gastrointestinal toxicity [Unknown]
  - Erosive oesophagitis [Recovered/Resolved]
  - Diabetic metabolic decompensation [Unknown]
  - Liver disorder [Unknown]
  - Pancreatic disorder [Unknown]
  - Gastrointestinal haemorrhage [Recovered/Resolved]

NARRATIVE: CASE EVENT DATE: 20160513
